FAERS Safety Report 8878822 (Version 2)
Quarter: 2012Q4

REPORT INFORMATION
  Report Type: 
  Country: US (occurrence: US)
  Receive Date: 20121030
  Receipt Date: 20121126
  Transmission Date: 20130627
  Serious: No
  Sender: FDA-Public Use
  Company Number: US-VERTEX PHARMACEUTICAL INC.-2012-023626

PATIENT
  Age: 56 None
  Sex: Female

DRUGS (6)
  1. VX-950 (TELAPREVIR) [Suspect]
     Indication: HEPATITIS C
     Dosage: 750 mg, tid
     Route: 048
     Dates: start: 201209, end: 20121022
  2. VX-950 (TELAPREVIR) [Suspect]
     Dosage: 750 mg, tid
     Route: 048
  3. PEGASYS [Concomitant]
     Indication: HEPATITIS C
     Dosage: 180 ?g, qw
     Route: 058
     Dates: start: 201209, end: 20121022
  4. PEGASYS [Concomitant]
     Dosage: 180 ?g, qw
     Route: 058
  5. RIBASPHERE [Concomitant]
     Indication: HEPATITIS C
     Dosage: 600 mg, bid
     Route: 048
     Dates: start: 201209, end: 20121022
  6. RIBASPHERE [Concomitant]
     Dosage: 600 mg, bid
     Route: 048

REACTIONS (8)
  - Drug dose omission [Unknown]
  - Influenza like illness [Unknown]
  - Fatigue [Unknown]
  - Rash [Unknown]
  - Platelet count decreased [Unknown]
  - Haemorrhoids [Unknown]
  - Pruritus generalised [Unknown]
  - Nausea [Unknown]
